FAERS Safety Report 6764246-X (Version None)
Quarter: 2010Q2

REPORT INFORMATION
  Report Type: 
  Country: None (occurrence: None)
  Receive Date: 20100610
  Receipt Date: 20100604
  Transmission Date: 20101027
  Serious: Yes (Death, Hospitalization)
  Sender: FDA-Public Use
  Company Number: DE-SANOFI-AVENTIS-2010SA030198

PATIENT
  Age: 71 Year
  Sex: Female

DRUGS (10)
  1. TAXOTERE [Suspect]
     Indication: BREAST CANCER
     Route: 041
     Dates: start: 20100312, end: 20100312
  2. TAXOTERE [Suspect]
     Route: 041
     Dates: start: 20100406, end: 20100406
  3. TRASTUZUMAB [Concomitant]
     Indication: BREAST CANCER
     Route: 041
  4. TRASTUZUMAB [Concomitant]
     Route: 041
  5. NEUPOGEN [Concomitant]
     Indication: PROPHYLAXIS
     Route: 030
     Dates: start: 20100407, end: 20100409
  6. NEUPOGEN [Concomitant]
     Route: 030
     Dates: start: 20100413, end: 20100413
  7. CLEMASTINE FUMARATE [Concomitant]
     Indication: PREMEDICATION
     Route: 042
     Dates: start: 20100312, end: 20100406
  8. KEVATRIL [Concomitant]
     Indication: PREMEDICATION
     Route: 042
     Dates: start: 20100312, end: 20100406
  9. RANITIDINE [Concomitant]
     Indication: PREMEDICATION
     Route: 042
     Dates: start: 20100312, end: 20100406
  10. DEXAMETHASONE [Concomitant]
     Indication: PREMEDICATION
     Route: 042
     Dates: start: 20100312, end: 20100406

REACTIONS (6)
  - BONE MARROW FAILURE [None]
  - LEUKOPENIA [None]
  - MUCOSAL INFLAMMATION [None]
  - MULTI-ORGAN FAILURE [None]
  - PNEUMONIA [None]
  - SKIN TOXICITY [None]
